FAERS Safety Report 10915327 (Version 4)
Quarter: 2015Q2

REPORT INFORMATION
  Report Type: Spontaneous
  Country: US (occurrence: US)
  Receive Date: 20150316
  Receipt Date: 20150619
  Transmission Date: 20150821
  Serious: Yes (Hospitalization, Other)
  Sender: FDA-Public Use
  Company Number: US-009507513-1503USA005674

PATIENT
  Age: 23 Year
  Sex: Female
  Weight: 75.28 kg

DRUGS (1)
  1. NEXPLANON [Suspect]
     Active Substance: ETONOGESTREL
     Indication: CONTRACEPTION
     Dosage: 1 ROD
     Route: 059
     Dates: start: 20140212, end: 20140212

REACTIONS (9)
  - Haemorrhage [Recovered/Resolved]
  - Vascular injury [Recovered/Resolved]
  - Device difficult to use [Not Recovered/Not Resolved]
  - Pain [Recovered/Resolved]
  - General anaesthesia [Recovered/Resolved]
  - Scar [Recovered/Resolved]
  - Compartment syndrome [Recovered/Resolved]
  - Hypoaesthesia [Recovered/Resolved]
  - Brachial plexus injury [Recovered/Resolved]

NARRATIVE: CASE EVENT DATE: 20140212
